FAERS Safety Report 13152840 (Version 2)
Quarter: 2017Q1

REPORT INFORMATION
  Report Type: Report from Study
  Country: FR (occurrence: FR)
  Receive Date: 20170126
  Receipt Date: 20170224
  Transmission Date: 20170428
  Serious: Yes (Other)
  Sender: FDA-Public Use
  Company Number: FR-ROCHE-1883666

PATIENT
  Sex: Female
  Weight: 54 kg

DRUGS (7)
  1. DIFFU K [Concomitant]
     Active Substance: POTASSIUM CHLORIDE
     Indication: HYPOKALAEMIA
     Dosage: ONGOING TREATMENT
     Route: 048
     Dates: start: 20160729
  2. ALIMTA [Concomitant]
     Active Substance: PEMETREXED DISODIUM
  3. VEMURAFENIB [Suspect]
     Active Substance: VEMURAFENIB
     Indication: NEOPLASM MALIGNANT
     Dosage: DATE OF LAST ADMINISTRATION OF VEMURAFENIB WAS ON 03/OCT/2016. LAST DOSE OF VEMURAFENIB ADMINISTERED
     Route: 048
     Dates: start: 20160713
  4. LETROZOLE. [Concomitant]
     Active Substance: LETROZOLE
     Indication: BREAST CANCER
     Dosage: ONGOING TREATMENT
     Route: 065
     Dates: start: 2013
  5. LERCANIDIPINE [Concomitant]
     Active Substance: LERCANIDIPINE
     Indication: HYPERTENSION
     Dosage: ONGOING TREATMENT
     Route: 048
     Dates: start: 201605
  6. CISPLATINE [Concomitant]
     Active Substance: CISPLATIN
  7. AVASTIN [Concomitant]
     Active Substance: BEVACIZUMAB

REACTIONS (1)
  - Malignant melanoma [Recovered/Resolved]

NARRATIVE: CASE EVENT DATE: 20161004
